FAERS Safety Report 23124277 (Version 1)
Quarter: 2023Q4

REPORT INFORMATION
  Report Type: Spontaneous
  Country: US (occurrence: None)
  Receive Date: 20231027
  Receipt Date: 20231027
  Transmission Date: 20240110
  Serious: Yes (Disabling, Other)
  Sender: FDA-Public Use
  Company Number: None

PATIENT
  Age: 78 Year
  Sex: Male
  Weight: 84.6 kg

DRUGS (8)
  1. LEVOFLOXACIN [Suspect]
     Active Substance: LEVOFLOXACIN
     Indication: Prostatitis
     Dosage: OTHER QUANTITY : 20 TABLET(S);?FREQUENCY : DAILY;?
     Route: 048
     Dates: start: 20221001, end: 20221018
  2. LIPITOR [Concomitant]
     Active Substance: ATORVASTATIN CALCIUM
  3. ASPIRIN [Concomitant]
     Active Substance: ASPIRIN
  4. pantobrazole [Concomitant]
  5. FLOMAX [Concomitant]
     Active Substance: TAMSULOSIN HYDROCHLORIDE
  6. MULTI [Concomitant]
  7. TYLENOL [Concomitant]
     Active Substance: ACETAMINOPHEN
  8. ADVIL [Concomitant]
     Active Substance: IBUPROFEN

REACTIONS (12)
  - General physical health deterioration [None]
  - Disturbance in attention [None]
  - Brain fog [None]
  - Amnesia [None]
  - Tendon pain [None]
  - Myalgia [None]
  - Gait disturbance [None]
  - Muscular weakness [None]
  - Loss of personal independence in daily activities [None]
  - Insomnia [None]
  - Mental impairment [None]
  - Visual impairment [None]

NARRATIVE: CASE EVENT DATE: 20221018
